FAERS Safety Report 4442341-8 (Version None)
Quarter: 2004Q3

REPORT INFORMATION
  Report Type: 
  Country: None (occurrence: None)
  Receive Date: 20040903
  Receipt Date: 20040719
  Transmission Date: 20050211
  Serious: Yes (Other)
  Sender: FDA-Public Use
  Company Number: 2004UW14916

PATIENT
  Age: 54 Year
  Sex: Female
  Weight: 79.3795 kg

DRUGS (3)
  1. CRESTOR [Suspect]
     Dosage: 10 MG PO
     Route: 048
  2. INSULIN [Concomitant]
  3. GLUCOPHAGE [Concomitant]

REACTIONS (3)
  - DERMATITIS EXFOLIATIVE [None]
  - DRY SKIN [None]
  - RASH PRURITIC [None]
